FAERS Safety Report 11813201 (Version 1)
Quarter: 2015Q4

REPORT INFORMATION
  Report Type: Report from Study
  Country: DE (occurrence: DE)
  Receive Date: 20151209
  Receipt Date: 20151209
  Transmission Date: 20160305
  Serious: Yes (Life-Threatening, Hospitalization)
  Sender: FDA-Public Use
  Company Number: DE-ROCHE-1674618

PATIENT
  Age: 51 Year
  Sex: Male

DRUGS (1)
  1. TOCILIZUMAB [Suspect]
     Active Substance: TOCILIZUMAB
     Indication: RHEUMATOID ARTHRITIS
     Dosage: LAST DOSE OF TOCILIZUMAB PRIOR TO THE EVENT: 16/JUN/2015
     Route: 065

REACTIONS (1)
  - Adenocarcinoma pancreas [Recovered/Resolved]

NARRATIVE: CASE EVENT DATE: 201507
